FAERS Safety Report 6510290-7 (Version None)
Quarter: 2009Q4

REPORT INFORMATION
  Report Type: 
  Country: None (occurrence: None)
  Receive Date: 20091222
  Receipt Date: 20091001
  Transmission Date: 20100525
  Serious: No
  Sender: FDA-Public Use
  Company Number: US-ASTRAZENECA-2009SE17282

PATIENT
  Age: 58 Year
  Sex: Female

DRUGS (2)
  1. CRESTOR [Suspect]
     Route: 048
     Dates: start: 20090926
  2. JANUVIA [Concomitant]
     Route: 065
     Dates: start: 20090926

REACTIONS (2)
  - HEADACHE [None]
  - URINARY INCONTINENCE [None]
